FAERS Safety Report 9434163 (Version 1)
Quarter: 2013Q3

REPORT INFORMATION
  Report Type: Spontaneous
  Country: CO (occurrence: CO)
  Receive Date: 20130801
  Receipt Date: 20130801
  Transmission Date: 20140515
  Serious: Yes (Other)
  Sender: FDA-Public Use
  Company Number: CO-AMGEN-COLSP2013053723

PATIENT
  Age: 63 Year
  Sex: Female

DRUGS (5)
  1. ENBREL [Suspect]
     Indication: PSORIASIS
     Dosage: 50 MG, 2X/WEEK
     Route: 058
     Dates: start: 201305, end: 201307
  2. ACTRAPHANE [Concomitant]
     Indication: DIABETES MELLITUS
     Dosage: 70 IU, 1X/DAY
     Route: 058
     Dates: start: 2009
  3. INSULIN [Concomitant]
     Indication: DIABETES MELLITUS
     Dosage: 9 IU, 1X/DAY
     Route: 058
     Dates: start: 2009
  4. NIMODIPINE [Concomitant]
     Indication: HYPERTENSION
     Dosage: 30 MG, 3X/DAY
     Route: 048
     Dates: start: 2010
  5. ENALAPRIL [Concomitant]
     Indication: HYPERTENSION
     Dosage: 20 MG, 2X/DAY
     Route: 048
     Dates: start: 2010

REACTIONS (2)
  - Fall [Not Recovered/Not Resolved]
  - Upper limb fracture [Not Recovered/Not Resolved]
